FAERS Safety Report 7719739-5 (Version None)
Quarter: 2011Q3

REPORT INFORMATION
  Report Type: 
  Country: None (occurrence: None)
  Receive Date: 20110831
  Receipt Date: 20110822
  Transmission Date: 20111222
  Serious: Yes (Hospitalization)
  Sender: FDA-Public Use
  Company Number: US-BIOGENIDEC-2010BI015991

PATIENT
  Age: 55 Year
  Sex: Female

DRUGS (12)
  1. TYSABRI [Suspect]
     Indication: MULTIPLE SCLEROSIS
     Route: 042
     Dates: start: 20091214
  2. ACIPHEX [Concomitant]
     Route: 048
  3. AMARYL [Concomitant]
     Route: 048
  4. INSULIN [Concomitant]
  5. CYNACOBALAMIN [Concomitant]
     Route: 030
  6. NOVOLOG [Concomitant]
  7. CLONIDINE HCL [Concomitant]
     Route: 048
  8. LEXAPRO [Concomitant]
  9. DYNACIRC [Concomitant]
     Route: 048
  10. LANTUS [Concomitant]
  11. BENICAR [Concomitant]
     Route: 048
  12. NORMODYNE [Concomitant]
     Route: 048

REACTIONS (10)
  - PERIPHERAL VASCULAR DISORDER [None]
  - POST PROCEDURAL COMPLICATION [None]
  - MENTAL IMPAIRMENT [None]
  - ASTHENIA [None]
  - VASCULAR OCCLUSION [None]
  - PARAESTHESIA [None]
  - HYPERTENSION [None]
  - HEMIPARESIS [None]
  - PRURITUS [None]
  - MEDICAL DEVICE COMPLICATION [None]
